FAERS Safety Report 6370941-7 (Version None)
Quarter: 2009Q3

REPORT INFORMATION
  Report Type: 
  Country: None (occurrence: None)
  Receive Date: 20090923
  Receipt Date: 20080728
  Transmission Date: 20100115
  Serious: No
  Sender: FDA-Public Use
  Company Number: US-ASTRAZENECA-2006UW23260

PATIENT
  Age: 595 Month
  Sex: Female
  Weight: 59 kg

DRUGS (2)
  1. SEROQUEL [Suspect]
     Indication: SCHIZOPHRENIA
     Route: 048
  2. AMPATRAMPHINE [Concomitant]

REACTIONS (3)
  - DIABETES MELLITUS [None]
  - PREGNANCY [None]
  - SURGERY [None]
